FAERS Safety Report 12341359 (Version 1)
Quarter: 2016Q2

REPORT INFORMATION
  Report Type: Spontaneous
  Country: US (occurrence: US)
  Receive Date: 20160506
  Receipt Date: 20160506
  Transmission Date: 20160815
  Serious: No
  Sender: FDA-Public Use
  Company Number: PHEH2016US011234

PATIENT
  Age: 44 Year
  Sex: Female

DRUGS (1)
  1. TYKERB [Suspect]
     Active Substance: LAPATINIB DITOSYLATE
     Indication: BREAST CANCER
     Dosage: 250 MG, QD (5 TABLETS DAILY)
     Route: 048
     Dates: start: 20160425, end: 20160503

REACTIONS (3)
  - Skin exfoliation [Unknown]
  - Abdominal pain upper [Unknown]
  - Skin tightness [Unknown]

NARRATIVE: CASE EVENT DATE: 20160503
